FAERS Safety Report 16665962 (Version 4)
Quarter: 2020Q1

REPORT INFORMATION
  Report Type: Spontaneous
  Country: US (occurrence: US)
  Receive Date: 20190805
  Receipt Date: 20200108
  Transmission Date: 20200409
  Serious: Yes (Hospitalization, Other)
  Sender: FDA-Public Use
  Company Number: US-SHIRE-US201924658

PATIENT
  Sex: Female

DRUGS (8)
  1. MOTEGRITY [Suspect]
     Active Substance: PRUCALOPRIDE SUCCINATE
     Indication: SMALL FIBRE NEUROPATHY
     Dosage: UNK, UNKNOWN
     Route: 065
     Dates: start: 20190724, end: 201907
  2. MOTEGRITY [Suspect]
     Active Substance: PRUCALOPRIDE SUCCINATE
     Indication: CONSTIPATION
     Dosage: 0.25 OR LESS OF A 1 MG, 4 DAYS
     Route: 065
     Dates: start: 20190803
  3. MOTEGRITY [Suspect]
     Active Substance: PRUCALOPRIDE SUCCINATE
     Dosage: 0.25 OR LESS OF A 1 MG
     Route: 065
     Dates: start: 20190828
  4. TRULANCE [Concomitant]
     Active Substance: PLECANATIDE
     Indication: PRODUCT USED FOR UNKNOWN INDICATION
  5. ATIVAN [Concomitant]
     Active Substance: LORAZEPAM
     Indication: VERTIGO
  6. MOTEGRITY [Suspect]
     Active Substance: PRUCALOPRIDE SUCCINATE
     Indication: AUTONOMIC NEUROPATHY
     Dosage: 0.25 MILLIGRAM, QOD
     Route: 065
     Dates: start: 20190714
  7. MIRALAX [Concomitant]
     Active Substance: POLYETHYLENE GLYCOL 3350
     Indication: PRODUCT USED FOR UNKNOWN INDICATION
  8. LINZESS [Concomitant]
     Active Substance: LINACLOTIDE
     Indication: PRODUCT USED FOR UNKNOWN INDICATION

REACTIONS (7)
  - Migraine [Unknown]
  - Product label issue [Unknown]
  - Loss of consciousness [Unknown]
  - Constipation [Unknown]
  - Vertigo [Unknown]
  - Incorrect dose administered [Unknown]
  - Diarrhoea [Unknown]
